FAERS Safety Report 22118433 (Version 1)
Quarter: 2023Q1

REPORT INFORMATION
  Report Type: Spontaneous
  Country: US (occurrence: US)
  Receive Date: 20230321
  Receipt Date: 20230321
  Transmission Date: 20230418
  Serious: Yes (Other)
  Sender: FDA-Public Use
  Company Number: US-JNJFOC-20230338316

PATIENT

DRUGS (2)
  1. BENADRYL [Suspect]
     Active Substance: DIPHENHYDRAMINE HYDROCHLORIDE
     Indication: Product used for unknown indication
     Route: 065
     Dates: start: 202303
  2. CLARITIN [Suspect]
     Active Substance: LORATADINE
     Indication: Product used for unknown indication
     Route: 065
     Dates: start: 202303

REACTIONS (1)
  - Hallucination, visual [Not Recovered/Not Resolved]

NARRATIVE: CASE EVENT DATE: 20230301
